FAERS Safety Report 23517107 (Version 1)
Quarter: 2024Q1

REPORT INFORMATION
  Report Type: Spontaneous
  Country: US (occurrence: None)
  Receive Date: 20240212
  Receipt Date: 20240212
  Transmission Date: 20240410
  Serious: Yes (unspecified)
  Sender: FDA-Public Use
  Company Number: None

PATIENT
  Age: 57 Year
  Sex: Female
  Weight: 70.4 kg

DRUGS (1)
  1. AIMOVIG [Suspect]
     Active Substance: ERENUMAB-AOOE
     Indication: Migraine without aura
     Dosage: OTHER FREQUENCY : OTHER;?
     Route: 058
     Dates: start: 20230810, end: 20240202

REACTIONS (1)
  - Urticaria [None]

NARRATIVE: CASE EVENT DATE: 20240130
